FAERS Safety Report 13988549 (Version 4)
Quarter: 2017Q4

REPORT INFORMATION
  Report Type: Report from Study
  Country: US (occurrence: US)
  Receive Date: 20170919
  Receipt Date: 20171219
  Transmission Date: 20180321
  Serious: Yes (Hospitalization)
  Sender: FDA-Public Use
  Company Number: US-ACTELION-A-US2017-159544

PATIENT
  Age: 78 Year
  Sex: Female
  Weight: 130 kg

DRUGS (3)
  1. UPTRAVI [Suspect]
     Active Substance: SELEXIPAG
     Indication: PULMONARY ARTERIAL HYPERTENSION
     Dosage: 200 MCG, BID
     Route: 048
     Dates: end: 20171018
  2. ADCIRCA [Concomitant]
     Active Substance: TADALAFIL
  3. WARFARIN [Concomitant]
     Active Substance: WARFARIN

REACTIONS (7)
  - Urethral haemorrhage [Unknown]
  - Hepatic cirrhosis [Unknown]
  - Dehydration [Unknown]
  - Asthenia [Unknown]
  - Epistaxis [Unknown]
  - Abdominal pain [Unknown]
  - Renal failure [Unknown]
